FAERS Safety Report 4560307-4 (Version None)
Quarter: 2005Q1

REPORT INFORMATION
  Report Type: 
  Country: None (occurrence: None)
  Receive Date: 20050125
  Receipt Date: 20050119
  Transmission Date: 20050727
  Serious: Yes (Hospitalization)
  Sender: FDA-Public Use
  Company Number: 200510435US

PATIENT
  Age: 77 Year
  Sex: Female
  Weight: 72.3 kg

DRUGS (4)
  1. LANTUS [Suspect]
     Indication: DIABETES MELLITUS NON-INSULIN-DEPENDENT
     Dosage: DOSE UNIT: UNITS
     Dates: start: 20050117
  2. NOVOLIN R [Concomitant]
     Dosage: DOSE: SLIDING SCALE
  3. OXYGEN [Concomitant]
     Dosage: DOSE: UNK
  4. UNKNOWN DRUG [Concomitant]
     Dosage: DOSE: UNK

REACTIONS (4)
  - BLOOD GLUCOSE DECREASED [None]
  - BLOOD GLUCOSE INCREASED [None]
  - COUGH [None]
  - PNEUMONIA [None]
